FAERS Safety Report 9781188 (Version 2)
Quarter: 2014Q1

REPORT INFORMATION
  Report Type: Spontaneous
  Country: US (occurrence: US)
  Receive Date: 20131224
  Receipt Date: 20140110
  Transmission Date: 20141002
  Serious: Yes (Other)
  Sender: FDA-Public Use
  Company Number: US-OTSUKA-US-2013-12380

PATIENT
  Sex: Male
  Weight: 124 kg

DRUGS (5)
  1. ABILIFY MAINTENA [Suspect]
     Indication: SCHIZOPHRENIA
     Dosage: 400 MG MILLIGRAM(S),Q4WK
     Route: 030
     Dates: start: 201306
  2. ABILIFY MAINTENA [Suspect]
  3. DEPAKOTE ER [Suspect]
     Indication: SCHIZOPHRENIA
     Dosage: 1500 MG MILLIGRAM(S), HS
  4. ABILIFY [Concomitant]
     Indication: SCHIZOPHRENIA
     Dosage: 20 MG MILLIGRAM(S), UNK
     Route: 048
     Dates: start: 20131030
  5. ABILIFY [Concomitant]
     Dosage: 30 MG MILLIGRAM(S), QD
     Route: 048
     Dates: start: 20131104

REACTIONS (4)
  - Hallucination [Recovered/Resolved]
  - Delusion [Recovered/Resolved]
  - Thinking abnormal [Recovered/Resolved]
  - Drug ineffective [Recovering/Resolving]
